FAERS Safety Report 12801832 (Version 1)
Quarter: 2016Q3

REPORT INFORMATION
  Report Type: Spontaneous
  Country: US (occurrence: US)
  Receive Date: 20160930
  Receipt Date: 20160930
  Transmission Date: 20161109
  Serious: Yes (Hospitalization)
  Sender: FDA-Public Use
  Company Number: None

PATIENT
  Age: 65 Year
  Sex: Male
  Weight: 58.5 kg

DRUGS (1)
  1. INSULIN [Suspect]
     Active Substance: INSULIN NOS
     Indication: TYPE 1 DIABETES MELLITUS
     Dosage: 10 UNITS AM SQ
     Route: 058
     Dates: start: 20160812, end: 20160920

REACTIONS (2)
  - Incorrect dose administered [None]
  - Hypoglycaemia [None]

NARRATIVE: CASE EVENT DATE: 20160920
